FAERS Safety Report 7996754-8 (Version None)
Quarter: 2011Q4

REPORT INFORMATION
  Report Type: 
  Country: None (occurrence: None)
  Receive Date: 20111221
  Receipt Date: 20111213
  Transmission Date: 20120403
  Serious: Yes (Other)
  Sender: FDA-Public Use
  Company Number: SI-JNJFOC-20111207389

PATIENT
  Sex: Male
  Weight: 86 kg

DRUGS (1)
  1. STELARA [Suspect]
     Indication: PSORIASIS
     Dosage: TOTAL NUMBER OF INJECTIONS 9
     Route: 058
     Dates: start: 20101020

REACTIONS (2)
  - GASTROENTERITIS [None]
  - CHRONIC MYELOID LEUKAEMIA [None]
